FAERS Safety Report 8934575 (Version 1)
Quarter: 2012Q4

REPORT INFORMATION
  Report Type: 
  Country: FR (occurrence: FR)
  Receive Date: 20121129
  Receipt Date: 20121129
  Transmission Date: 20130627
  Serious: Yes (Hospitalization, Other)
  Sender: FDA-Public Use
  Company Number: FR-009507513-1206USA02824

PATIENT
  Age: 71 Year
  Sex: Male

DRUGS (11)
  1. EMEND [Suspect]
     Dosage: 125 mg, qd
     Route: 048
     Dates: start: 20120322, end: 20120325
  2. SOLUPRED [Suspect]
     Dosage: 50 mg, bid
     Dates: start: 20120321, end: 20120323
  3. CISPLATIN [Suspect]
     Indication: LUNG SQUAMOUS CELL CARCINOMA METASTATIC
     Dosage: 143 mg, ONCE
     Route: 042
     Dates: start: 20120322, end: 20120322
  4. TAXOTERE [Suspect]
     Indication: LUNG SQUAMOUS CELL CARCINOMA METASTATIC
     Dosage: 144 mg, ONCE
     Route: 042
     Dates: start: 20120322, end: 20120322
  5. CORDARONE [Concomitant]
     Dosage: 200 mg, qd
     Route: 048
  6. DIFFU-K [Concomitant]
     Route: 048
  7. DOMPERIDONE [Suspect]
     Dosage: 10 mg, bid
     Route: 048
     Dates: start: 201202, end: 20120330
  8. ISOPTINE [Suspect]
     Dosage: 120 mg, qd
     Route: 048
     Dates: start: 20120109, end: 20120322
  9. ZOPHREN (ONDANSETRON) [Suspect]
     Dosage: 8 ?g, bid
     Route: 048
     Dates: start: 20120322, end: 20120325
  10. OXYNORM [Suspect]
     Dosage: 5 mg, bid
     Route: 048
     Dates: start: 20120307, end: 20120322
  11. GRANOCYTE [Suspect]
     Dosage: 34 IU, qd
     Route: 058
     Dates: start: 20120322, end: 20120325

REACTIONS (1)
  - Pancreatitis acute [Recovered/Resolved]
